FAERS Safety Report 8629934 (Version 4)
Quarter: 2013Q1

REPORT INFORMATION
  Report Type: Spontaneous
  Country: IT (occurrence: IT)
  Receive Date: 20120622
  Receipt Date: 20130308
  Transmission Date: 20140127
  Serious: Yes (Other)
  Sender: FDA-Public Use
  Company Number: IT-SANOFI-AVENTIS-2012SA042436

PATIENT
  Age: 72 Year
  Sex: Male

DRUGS (4)
  1. JEVTANA [Suspect]
     Indication: PROSTATE CANCER METASTATIC
     Route: 042
     Dates: start: 20120518, end: 20120518
  2. CARDICOR [Concomitant]
  3. POLASE [Concomitant]
  4. BIFRIL [Concomitant]

REACTIONS (1)
  - Ejection fraction decreased [Recovered/Resolved]
